FAERS Safety Report 5640875-1 (Version None)
Quarter: 2008Q1

REPORT INFORMATION
  Report Type: 
  Country: None (occurrence: None)
  Receive Date: 20080227
  Receipt Date: 20080221
  Transmission Date: 20080703
  Serious: Yes (Death)
  Sender: FDA-Public Use
  Company Number: A0711385A

PATIENT
  Age: 80 Year
  Sex: Male
  Weight: 60 kg

DRUGS (5)
  1. SERETIDE [Suspect]
     Route: 055
     Dates: start: 20060918, end: 20070920
  2. ENALAPRIL MALEATE [Concomitant]
     Dates: start: 19980223, end: 20071007
  3. SPIRIVA [Concomitant]
     Dates: start: 20060320, end: 20070919
  4. WARFARIN SODIUM [Concomitant]
     Dates: start: 20070509, end: 20071007
  5. BUDESONIDE [Concomitant]
     Dates: start: 20060101, end: 20070920

REACTIONS (1)
  - PULMONARY HYPERTENSION [None]
